FAERS Safety Report 7756362-0 (Version None)
Quarter: 2011Q3

REPORT INFORMATION
  Report Type: 
  Country: None (occurrence: None)
  Receive Date: 20110916
  Receipt Date: 20110907
  Transmission Date: 20111222
  Serious: Yes (Hospitalization, Other)
  Sender: FDA-Public Use
  Company Number: US-BAYER-201039999NA

PATIENT
  Sex: Female
  Weight: 60.317 kg

DRUGS (7)
  1. NEXIUM [Concomitant]
  2. RANITIDINE [Concomitant]
  3. YAZ [Suspect]
     Indication: ORAL CONTRACEPTION
     Dosage: UNK UNK, UNK
     Route: 048
     Dates: start: 20061201, end: 20090801
  4. PROTONIX [Concomitant]
  5. PRILOSEC [Concomitant]
     Indication: CONTRACEPTION
  6. ACIPHEX [Concomitant]
  7. FLUCONAZOLE [Concomitant]
     Dosage: 150 MG, UNK

REACTIONS (5)
  - BILE OUTPUT INCREASED [None]
  - DYSPEPSIA [None]
  - CHOLELITHIASIS [None]
  - GALLBLADDER DISORDER [None]
  - ABDOMINAL PAIN UPPER [None]
